FAERS Safety Report 6853491-0 (Version None)
Quarter: 2010Q3

REPORT INFORMATION
  Report Type: 
  Country: None (occurrence: None)
  Receive Date: 20100717
  Receipt Date: 20080107
  Transmission Date: 20110219
  Serious: No
  Sender: FDA-Public Use
  Company Number: US-PFIZER INC-2007103414

PATIENT
  Sex: Male
  Weight: 95.5 kg

DRUGS (4)
  1. CHANTIX [Suspect]
     Indication: SMOKING CESSATION THERAPY
     Dates: start: 20071022, end: 20071101
  2. TOPROL-XL [Concomitant]
     Dates: start: 20010101
  3. LISINOPRIL [Concomitant]
     Dates: start: 20010101
  4. VYTORIN [Concomitant]
     Dates: start: 20010101

REACTIONS (7)
  - AMNESIA [None]
  - ANGER [None]
  - HUNGER [None]
  - IRRITABILITY [None]
  - NAUSEA [None]
  - NIGHTMARE [None]
  - SLEEP DISORDER [None]
